FAERS Safety Report 8619881-0 (Version None)
Quarter: 2012Q3

REPORT INFORMATION
  Report Type: 
  Country: None (occurrence: None)
  Receive Date: 20120824
  Receipt Date: 20120820
  Transmission Date: 20120928
  Serious: Yes (Other)
  Sender: FDA-Public Use
  Company Number: US-PFIZER INC-2012120632

PATIENT
  Age: 75 Year
  Sex: Female
  Weight: 74.83 kg

DRUGS (10)
  1. HYDROCHLOROTHIAZIDE [Concomitant]
     Dosage: 25 MG, 1X/DAY
  2. LOTRISONE [Concomitant]
     Dosage: 1-0.05 % BID
  3. IMODIUM [Concomitant]
     Dosage: 1 MG/7.5 ML QD
  4. ADVIL [Concomitant]
     Dosage: 200 MG, EVERY 4-6 HOURS AS NEEDED
  5. METFORMIN [Concomitant]
     Dosage: 500 MG, 1X/DAY
  6. LEVOTHYROXINE [Concomitant]
     Dosage: UNK
  7. AMARYL [Concomitant]
     Dosage: 4 MG, 1X/DAY
  8. LISINOPRIL [Concomitant]
     Dosage: 10 MG, UNK
  9. ONGLYZA [Concomitant]
     Dosage: 5 MG, 1X/DAY
  10. LIPITOR [Suspect]
     Dosage: 20 MG, 1X/DAY

REACTIONS (3)
  - MUSCULOSKELETAL CHEST PAIN [None]
  - MYALGIA [None]
  - GLYCOSYLATED HAEMOGLOBIN INCREASED [None]
